FAERS Safety Report 16244349 (Version 1)
Quarter: 2019Q2

REPORT INFORMATION
  Report Type: Spontaneous
  Country: AU (occurrence: AU)
  Receive Date: 20190426
  Receipt Date: 20190426
  Transmission Date: 20190711
  Serious: Yes (Hospitalization)
  Sender: FDA-Public Use
  Company Number: AU-JNJFOC-20190431640

PATIENT

DRUGS (1)
  1. INVEGA TRINZA [Suspect]
     Active Substance: PALIPERIDONE PALMITATE
     Indication: BIPOLAR DISORDER
     Route: 030

REACTIONS (4)
  - Drug ineffective for unapproved indication [Unknown]
  - Substance abuse [Unknown]
  - Bipolar disorder [Unknown]
  - Off label use [Unknown]
